FAERS Safety Report 9504898 (Version 2)
Quarter: 2014Q2

REPORT INFORMATION
  Report Type: Report from Study
  Country: JP (occurrence: JP)
  Receive Date: 20130906
  Receipt Date: 20140402
  Transmission Date: 20141212
  Serious: Yes (Hospitalization, Other)
  Sender: FDA-Public Use
  Company Number: JP-GILEAD-2013-0082796

PATIENT
  Age: 44 Year
  Sex: Male
  Weight: 55 kg

DRUGS (12)
  1. AMBRISENTAN [Suspect]
     Indication: PULMONARY HYPERTENSION
     Dosage: 10 MG, QD
     Route: 048
     Dates: start: 20110502
  2. ADCIRCA [Concomitant]
     Indication: PULMONARY HYPERTENSION
     Dosage: UNK
     Route: 048
  3. ALDACTONE A [Concomitant]
     Indication: PULMONARY HYPERTENSION
     Route: 048
  4. ZYLORIC [Concomitant]
     Route: 048
  5. DIFLUCAN [Concomitant]
     Route: 048
     Dates: start: 20110815
  6. PARIET [Concomitant]
     Route: 048
  7. FUROSEMIDE [Concomitant]
     Indication: PULMONARY HYPERTENSION
     Route: 048
  8. LYRICA [Concomitant]
     Route: 048
     Dates: start: 20110802
  9. WARFARIN [Concomitant]
     Route: 048
  10. SEROQUEL [Concomitant]
     Route: 048
  11. CALONAL [Concomitant]
     Route: 048
  12. FUNGUARD [Concomitant]
     Route: 042
     Dates: start: 20110513, end: 20110814

REACTIONS (4)
  - Haemorrhagic anaemia [Recovering/Resolving]
  - Right ventricular failure [Recovering/Resolving]
  - Renal impairment [Recovered/Resolved]
  - Haemorrhage [Recovering/Resolving]
